FAERS Safety Report 16269284 (Version 1)
Quarter: 2019Q2

REPORT INFORMATION
  Report Type: Spontaneous
  Country: US (occurrence: US)
  Receive Date: 20190502
  Receipt Date: 20190502
  Transmission Date: 20190711
  Serious: Yes (Hospitalization)
  Sender: FDA-Public Use
  Company Number: None

PATIENT
  Age: 72 Year
  Sex: Female

DRUGS (1)
  1. RENFLEXIS [Suspect]
     Active Substance: INFLIXIMAB-ABDA
     Dosage: ?          OTHER FREQUENCY:EVERY 8 WEEKS;?
     Route: 041
     Dates: start: 20181001, end: 20190429

REACTIONS (2)
  - Flushing [None]
  - Dyspnoea [None]

NARRATIVE: CASE EVENT DATE: 20190429
